FAERS Safety Report 5800478-2 (Version None)
Quarter: 2008Q3

REPORT INFORMATION
  Report Type: 
  Country: None (occurrence: None)
  Receive Date: 20080703
  Receipt Date: 20080627
  Transmission Date: 20090109
  Serious: Yes (Hospitalization)
  Sender: FDA-Public Use
  Company Number: A0735193A

PATIENT
  Sex: Female

DRUGS (3)
  1. ADVAIR DISKUS 100/50 [Suspect]
     Indication: EMPHYSEMA
     Dosage: 1PUFF TWICE PER DAY
     Route: 055
     Dates: end: 20080624
  2. NAMENDA [Suspect]
     Dosage: 1TAB PER DAY
     Dates: start: 20040101, end: 20060101
  3. SPIRIVA [Concomitant]

REACTIONS (6)
  - CHEST DISCOMFORT [None]
  - DIARRHOEA [None]
  - DYSPNOEA [None]
  - JAUNDICE [None]
  - MEMORY IMPAIRMENT [None]
  - PANCREATIC CARCINOMA [None]
